FAERS Safety Report 8260269-2 (Version None)
Quarter: 2012Q2

REPORT INFORMATION
  Report Type: 
  Country: None (occurrence: None)
  Receive Date: 20120404
  Receipt Date: 20111107
  Transmission Date: 20120825
  Serious: Yes (Hospitalization)
  Sender: FDA-Public Use
  Company Number: US-ROCHE-1012231

PATIENT
  Sex: Female

DRUGS (7)
  1. HERCEPTIN [Suspect]
     Indication: BREAST CANCER
     Route: 042
     Dates: start: 20041109
  2. IXABEPILONE [Suspect]
     Indication: BREAST CANCER
     Route: 042
  3. CARBOPLATIN [Suspect]
     Indication: BREAST CANCER
     Dosage: 2 AUC
     Route: 042
  4. DEXAMETHASONE [Suspect]
     Indication: PRODUCT USED FOR UNKNOWN INDICATION
  5. HERCEPTIN [Suspect]
  6. HERCEPTIN [Suspect]
  7. DIPHENHYDRAMINE HYDROCHLORIDE [Suspect]
     Indication: PRODUCT USED FOR UNKNOWN INDICATION

REACTIONS (7)
  - AGITATION [None]
  - ANXIETY [None]
  - DELUSION [None]
  - CONFUSIONAL STATE [None]
  - INSOMNIA [None]
  - TOXICITY TO VARIOUS AGENTS [None]
  - PYREXIA [None]
